FAERS Safety Report 12838088 (Version 1)
Quarter: 2016Q4

REPORT INFORMATION
  Report Type: Spontaneous
  Country: US (occurrence: US)
  Receive Date: 20161012
  Receipt Date: 20161012
  Transmission Date: 20170207
  Serious: No
  Sender: FDA-Public Use
  Company Number: US-BAYER-2016-194354

PATIENT
  Age: 3 Year
  Sex: Female

DRUGS (1)
  1. CLARITIN REDITABS [Suspect]
     Active Substance: LORATADINE
     Dosage: 6 DF, ONCE
     Route: 048
     Dates: start: 20161005, end: 20161005

REACTIONS (2)
  - Accidental exposure to product by child [Unknown]
  - Product packaging issue [None]

NARRATIVE: CASE EVENT DATE: 20161005
